FAERS Safety Report 19100927 (Version 2)
Quarter: 2021Q2

REPORT INFORMATION
  Report Type: Other
  Country: US (occurrence: US)
  Receive Date: 20210407
  Receipt Date: 20210415
  Transmission Date: 20210717
  Serious: Yes (Hospitalization)
  Sender: FDA-Public Use
  Company Number: US-ROCHE-2784697

PATIENT
  Age: 32 Year
  Sex: Female
  Weight: 81.72 kg

DRUGS (21)
  1. ACYCLOVIR. [Concomitant]
     Active Substance: ACYCLOVIR
     Route: 048
  2. CALCIUM [Concomitant]
     Active Substance: CALCIUM
     Route: 048
  3. OCREVUS [Suspect]
     Active Substance: OCRELIZUMAB
     Indication: PROGRESSIVE MULTIPLE SCLEROSIS
     Dosage: ON 29/MAY/2019, 24/JAN/2020 AND 24/JUL/2020, RECEIVED OCRELIZUMAB TREATMENT.?30 MG/ML INTRAVENOUS SO
     Route: 042
     Dates: start: 2019
  4. CETIRIZINE [Concomitant]
     Active Substance: CETIRIZINE HYDROCHLORIDE
     Indication: HYPERSENSITIVITY
     Route: 048
  5. PROZAC [Concomitant]
     Active Substance: FLUOXETINE HYDROCHLORIDE
     Indication: BIPOLAR I DISORDER
     Route: 048
  6. FOLIC ACID. [Concomitant]
     Active Substance: FOLIC ACID
     Route: 048
  7. IRON [Concomitant]
     Active Substance: IRON
     Dosage: 65 MG IRON
     Route: 048
  8. METFORMIN [Concomitant]
     Active Substance: METFORMIN HYDROCHLORIDE
     Dosage: WITH MORNING AND EVENING MEALS
     Route: 048
  9. BUPROPION. [Concomitant]
     Active Substance: BUPROPION
     Indication: ATTENTION DEFICIT HYPERACTIVITY DISORDER
     Route: 048
  10. TRAZODONE [Concomitant]
     Active Substance: TRAZODONE HYDROCHLORIDE
     Route: 048
  11. TRAMADOL. [Concomitant]
     Active Substance: TRAMADOL
     Dosage: TAKE 0.5 TABLET TO 1 TAB BY ORAL ROUTE EVERY 8 HOURS AS NEEDED
     Route: 048
  12. VITAMIN C [Concomitant]
     Active Substance: ASCORBIC ACID
     Dosage: CAPSULE, EXTENDED RELEASE
  13. ATOMOXETINE. [Concomitant]
     Active Substance: ATOMOXETINE HYDROCHLORIDE
     Indication: ATTENTION DEFICIT HYPERACTIVITY DISORDER
     Route: 048
  14. ACYCLOVIR. [Concomitant]
     Active Substance: ACYCLOVIR
     Dosage: MORNING AND NIGHT
     Route: 048
  15. CETIRIZINE [Concomitant]
     Active Substance: CETIRIZINE HYDROCHLORIDE
     Route: 048
  16. MAGNESIUM [Concomitant]
     Active Substance: MAGNESIUM
  17. PROCTOZONE HC [Concomitant]
     Active Substance: HYDROCORTISONE
     Indication: PRURITUS
     Dosage: APPLY A THIN LAYER TO THE AFFECTED AREA TOPICALLY 2 TO 4 TIMES EVERY DAY AFTER BOWEL MOVEMENT FOR IT
     Route: 061
  18. PROCTOZONE HC [Concomitant]
     Active Substance: HYDROCORTISONE
     Indication: DISCOMFORT
  19. VITAMIN D3 [Concomitant]
     Active Substance: CHOLECALCIFEROL
     Dosage: 2000 UNIT
     Route: 048
  20. TRAZODONE [Concomitant]
     Active Substance: TRAZODONE HYDROCHLORIDE
     Indication: INSOMNIA
     Dosage: AT NIGHT
     Route: 048
  21. CALCIUM [Concomitant]
     Active Substance: CALCIUM
     Route: 048

REACTIONS (2)
  - Off label use [Unknown]
  - Groin abscess [Unknown]

NARRATIVE: CASE EVENT DATE: 20201212
